FAERS Safety Report 17493828 (Version 2)
Quarter: 2020Q2

REPORT INFORMATION
  Report Type: Report from Study
  Country: US (occurrence: US)
  Receive Date: 20200304
  Receipt Date: 20200429
  Transmission Date: 20200713
  Serious: No
  Sender: FDA-Public Use
  Company Number: US-AMGEN-USASP2020034921

PATIENT
  Age: 56 Year
  Sex: Female

DRUGS (1)
  1. REPATHA [Suspect]
     Active Substance: EVOLOCUMAB
     Indication: HYPERCHOLESTEROLAEMIA
     Dosage: 140 MILLIGRAM, Q2WK
     Route: 065
     Dates: start: 2019

REACTIONS (5)
  - Fear of injection [Unknown]
  - Injection site haematoma [Unknown]
  - Accidental exposure to product [Unknown]
  - Device failure [Unknown]
  - Device difficult to use [Unknown]

NARRATIVE: CASE EVENT DATE: 2019
